FAERS Safety Report 17986848 (Version 1)
Quarter: 2020Q3

REPORT INFORMATION
  Report Type: Spontaneous
  Country: CN (occurrence: CN)
  Receive Date: 20200707
  Receipt Date: 20200707
  Transmission Date: 20201103
  Serious: Yes (Other)
  Sender: FDA-Public Use
  Company Number: CN-UCBSA-2020026205

PATIENT
  Age: 5 Month
  Sex: Female
  Weight: 3.5 kg

DRUGS (4)
  1. KEPPRA [Suspect]
     Active Substance: LEVETIRACETAM
     Dosage: 0.6 MILLILITER, 2X/DAY (BID)
     Route: 048
     Dates: start: 20200303, end: 20200623
  2. DEPAKINE [VALPROATE SODIUM] [Suspect]
     Active Substance: VALPROATE SODIUM
     Indication: EPILEPSY
     Dosage: 0.8 MILLILITER, 2X/DAY (BID)
     Route: 048
     Dates: start: 20200407
  3. DEPAKINE [VALPROATE SODIUM] [Suspect]
     Active Substance: VALPROATE SODIUM
     Dosage: 2 MILLILITER, 2X/DAY (BID)
     Route: 048
     Dates: end: 20200623
  4. KEPPRA [Suspect]
     Active Substance: LEVETIRACETAM
     Indication: EPILEPSY
     Dosage: 0.3 MILLILITER, 2X/DAY (BID)
     Route: 048

REACTIONS (1)
  - Granulocytopenia [Unknown]

NARRATIVE: CASE EVENT DATE: 20200623
